FAERS Safety Report 9809702 (Version 4)
Quarter: 2015Q1

REPORT INFORMATION
  Report Type: Spontaneous
  Country: US (occurrence: US)
  Receive Date: 20140110
  Receipt Date: 20150211
  Transmission Date: 20150721
  Serious: Yes (Other)
  Sender: FDA-Public Use
  Company Number: US-SANOFI-AVENTIS-2012SA064663

PATIENT
  Age: 66 Year
  Sex: Male

DRUGS (1)
  1. PLAVIX [Suspect]
     Active Substance: CLOPIDOGREL BISULFATE
     Indication: CORONARY ARTERIAL STENT INSERTION
     Route: 065
     Dates: start: 20050202, end: 20080911

REACTIONS (8)
  - Neuropathy peripheral [Unknown]
  - Loss of consciousness [Unknown]
  - Optic nerve disorder [Unknown]
  - Cerebral haemorrhage [Unknown]
  - Insomnia [Unknown]
  - Memory impairment [Unknown]
  - Coma [Unknown]
  - Psychotic disorder [Unknown]

NARRATIVE: CASE EVENT DATE: 20080911
